FAERS Safety Report 6555665-5 (Version None)
Quarter: 2010Q1

REPORT INFORMATION
  Report Type: 
  Country: None (occurrence: None)
  Receive Date: 20100128
  Receipt Date: 20100115
  Transmission Date: 20100710
  Serious: Yes (Hospitalization)
  Sender: FDA-Public Use
  Company Number: PHEH2009US14396

PATIENT
  Sex: Female

DRUGS (8)
  1. RECLAST [Suspect]
     Dosage: 5 MG
     Dates: start: 20091001, end: 20091001
  2. NAMENDA [Concomitant]
     Dosage: 10 MG, UNK
  3. NEXIUM [Concomitant]
     Dosage: 20 MG, UNK
  4. ARICEPT [Concomitant]
     Dosage: 10 MG, UNK
  5. ASPIRIN [Concomitant]
  6. PANTOPRAZOLE [Concomitant]
  7. CYANOCOBALAMIN [Concomitant]
     Dosage: 1000 MG, EVERY 7 DAYS
     Route: 058
  8. CYANOCOBALAMIN [Concomitant]
     Dosage: 250 UG, BID

REACTIONS (11)
  - BLOOD CREATINE PHOSPHOKINASE INCREASED [None]
  - BLOOD CREATINE PHOSPHOKINASE MB INCREASED [None]
  - C-REACTIVE PROTEIN INCREASED [None]
  - CARDIAC ENZYMES INCREASED [None]
  - CONFUSIONAL STATE [None]
  - ELECTROENCEPHALOGRAM ABNORMAL [None]
  - HYPONATRAEMIA [None]
  - LEUKOCYTOSIS [None]
  - MENTAL STATUS CHANGES [None]
  - UNRESPONSIVE TO STIMULI [None]
  - VITAMIN B12 DECREASED [None]
